FAERS Safety Report 16737845 (Version 2)
Quarter: 2019Q3

REPORT INFORMATION
  Report Type: Report from Study
  Country: ZA (occurrence: ZA)
  Receive Date: 20190824
  Receipt Date: 20190829
  Transmission Date: 20191005
  Serious: Yes (Death, Other)
  Sender: FDA-Public Use
  Company Number: ZA-AMGEN-ZAFNI2019124731

PATIENT
  Age: 44 Year
  Sex: Male

DRUGS (2)
  1. DEXAMETHASONE. [Concomitant]
     Active Substance: DEXAMETHASONE
     Dosage: 20 MILLIGRAM, QD
     Route: 042
     Dates: start: 20190708, end: 20190718
  2. BLINATUMOMAB [Suspect]
     Active Substance: BLINATUMOMAB
     Indication: NON-HODGKIN^S LYMPHOMA REFRACTORY
     Dosage: 9 MICROGRAM, QD
     Route: 042
     Dates: start: 20190708, end: 20190718

REACTIONS (3)
  - Dyspnoea [Fatal]
  - Lymphadenopathy [Fatal]
  - Non-Hodgkin^s lymphoma [Fatal]

NARRATIVE: CASE EVENT DATE: 20190717
